FAERS Safety Report 10378521 (Version 1)
Quarter: 2014Q1

REPORT INFORMATION
  Report Type: Spontaneous
  Country: US (occurrence: None)
  Receive Date: 20140306
  Receipt Date: 20140306
  Transmission Date: 20141002
  Serious: Yes (Hospitalization, Other)
  Sender: FDA-Public Use
  Company Number: 163-21880-13023198

PATIENT
  Age: 63 Year
  Sex: Male
  Weight: 122.93 kg

DRUGS (9)
  1. REVLIMID [Suspect]
     Indication: PLASMA CELL MYELOMA
     Dosage: 21 IN 21 D, PO
     Route: 048
     Dates: start: 20080930
  2. ASTELIN [Concomitant]
  3. DEXAMETHASONE [Concomitant]
  4. EPIPEN (EPINEPHRINE) [Concomitant]
  5. NASONEX (MOMETASONE FUROATE) [Concomitant]
  6. POTASSIUM BICARBONATE [Concomitant]
  7. PROAIR HFA (SALBUTAMOL SULFATE) [Concomitant]
  8. VELCADE (BORTEZOMIB) [Concomitant]
  9. SINGULAIR [Concomitant]

REACTIONS (3)
  - Pneumonia streptococcal [None]
  - Thrombocytopenia [None]
  - Weight decreased [None]
